FAERS Safety Report 8803275 (Version 1)
Quarter: 2012Q4

REPORT INFORMATION
  Report Type: Report from Study
  Country: CA (occurrence: CA)
  Receive Date: 20120924
  Receipt Date: 20120924
  Transmission Date: 20130627
  Serious: Yes (Other)
  Sender: FDA-Public Use
  Company Number: CA-JNJFOC-20120905743

PATIENT
  Age: 60 Year
  Sex: Female
  Weight: 79.2 kg

DRUGS (12)
  1. REMICADE [Suspect]
     Indication: ANKYLOSING SPONDYLITIS
     Dosage: had 27 infusions
     Route: 042
     Dates: start: 20090928
  2. KETOPROFEN [Concomitant]
     Route: 065
  3. MTX [Concomitant]
     Route: 065
  4. ATIVAN [Concomitant]
     Route: 065
  5. FOLIC ACID [Concomitant]
     Route: 065
  6. NIACIN [Concomitant]
     Route: 065
  7. VITAMIN D W/ CALCIUM [Concomitant]
     Route: 065
  8. OMEPRAZOLE [Concomitant]
     Route: 065
  9. ST JOHN^S WORT [Concomitant]
     Route: 065
  10. MILK THISTLE [Concomitant]
     Route: 065
  11. SALMON OIL [Concomitant]
     Route: 065
  12. PROBIOTICS [Concomitant]
     Route: 065

REACTIONS (1)
  - Carpal tunnel syndrome [Not Recovered/Not Resolved]
